FAERS Safety Report 5202741-5 (Version None)
Quarter: 2007Q1

REPORT INFORMATION
  Report Type: 
  Country: None (occurrence: None)
  Receive Date: 20070109
  Receipt Date: 20070102
  Transmission Date: 20070707
  Serious: Yes (Disabling)
  Sender: FDA-Public Use
  Company Number: IN-PFIZER INC-2007001295

PATIENT
  Age: 65 Year
  Sex: Female

DRUGS (5)
  1. FRAGMIN [Suspect]
     Indication: ACUTE CORONARY SYNDROME
     Route: 058
     Dates: start: 20061215, end: 20061216
  2. ASPIRIN [Concomitant]
     Dosage: DAILY DOSE:150MG
     Route: 048
  3. CLOPIDOGREL [Concomitant]
     Route: 048
  4. ATORVASTATIN CALCIUM [Concomitant]
     Route: 048
  5. ORGANIC NITRATES [Concomitant]
     Route: 048

REACTIONS (2)
  - PARAPLEGIA [None]
  - SPINAL HAEMATOMA [None]
